FAERS Safety Report 7051785-X (Version None)
Quarter: 2010Q4

REPORT INFORMATION
  Report Type: 
  Country: None (occurrence: None)
  Receive Date: 20101019
  Receipt Date: 20101008
  Transmission Date: 20110411
  Serious: No
  Sender: FDA-Public Use
  Company Number: US-JNJFOC-20101002902

PATIENT
  Sex: Male
  Weight: 72.58 kg

DRUGS (5)
  1. FENTANYL [Suspect]
     Indication: PAIN
     Route: 062
  2. FENTANYL [Suspect]
     Route: 062
  3. VALIUM [Concomitant]
     Indication: NERVOUSNESS
     Route: 048
  4. PERCOCET [Concomitant]
     Indication: PAIN
     Dosage: 1-3 TABLET AS NEEDED, UPTO 5 TIMES A DAY
     Route: 048
  5. XANAX [Concomitant]
     Indication: SLEEP DISORDER
     Dosage: AS NEEDED
     Route: 048

REACTIONS (4)
  - CONDITION AGGRAVATED [None]
  - PAIN IN EXTREMITY [None]
  - SCIATICA [None]
  - WRONG TECHNIQUE IN DRUG USAGE PROCESS [None]
